FAERS Safety Report 23897429 (Version 1)
Quarter: 2024Q2

REPORT INFORMATION
  Report Type: Other
  Country: US (occurrence: US)
  Receive Date: 20240524
  Receipt Date: 20240524
  Transmission Date: 20240715
  Serious: No
  Sender: FDA-Public Use
  Company Number: US-Person and Covey-2157403

PATIENT
  Sex: Female

DRUGS (1)
  1. SOLBAR THIRTY SPF 30 [Suspect]
     Active Substance: AVOBENZONE\HOMOSALATE\OCTINOXATE\OCTOCRYLENE\OXYBENZONE
     Route: 003

REACTIONS (1)
  - Acne cosmetica [Unknown]

NARRATIVE: CASE EVENT DATE: 20240501
